FAERS Safety Report 5902049-6 (Version None)
Quarter: 2008Q3

REPORT INFORMATION
  Report Type: 
  Country: None (occurrence: None)
  Receive Date: 20080929
  Receipt Date: 20080918
  Transmission Date: 20090109
  Serious: Yes (Hospitalization)
  Sender: FDA-Public Use
  Company Number: FR-PFIZER INC-2008048236

PATIENT
  Sex: Female
  Weight: 47 kg

DRUGS (8)
  1. DALACINE [Suspect]
     Indication: SURGERY
     Route: 048
     Dates: start: 20080510, end: 20080520
  2. DALACINE [Suspect]
     Indication: CHOLECYSTITIS
  3. TRILEPTAL [Suspect]
     Indication: CONVULSION
     Route: 048
     Dates: start: 20070301
  4. SINTROM [Concomitant]
  5. KARDEGIC [Concomitant]
  6. HYTACAND [Concomitant]
  7. CARDENSIEL [Concomitant]
  8. PRAVASTATIN SODIUM [Concomitant]

REACTIONS (4)
  - DERMATITIS EXFOLIATIVE [None]
  - DRUG RASH WITH EOSINOPHILIA AND SYSTEMIC SYMPTOMS [None]
  - NEPHRITIS [None]
  - RENAL DISORDER [None]
